FAERS Safety Report 15727587 (Version 1)
Quarter: 2018Q4

REPORT INFORMATION
  Report Type: Spontaneous
  Country: US (occurrence: US)
  Receive Date: 20181217
  Receipt Date: 20181217
  Transmission Date: 20190205
  Serious: No
  Sender: FDA-Public Use
  Company Number: US-NOVEN PHARMACEUTICALS, INC.-US2018000030

PATIENT

DRUGS (1)
  1. MINIVELLE [Suspect]
     Active Substance: ESTRADIOL
     Indication: HORMONE REPLACEMENT THERAPY
     Dosage: USING 0.1MG AND 0.05 MG PATCH TOGETHER, 2/WK
     Route: 062

REACTIONS (4)
  - Wrong technique in product usage process [Unknown]
  - Prescribed overdose [Unknown]
  - Off label use [Unknown]
  - No adverse event [Unknown]
